FAERS Safety Report 5279932-0 (Version None)
Quarter: 2007Q1

REPORT INFORMATION
  Report Type: 
  Country: None (occurrence: None)
  Receive Date: 20061215
  Receipt Date: 20060117
  Transmission Date: 20070707
  Serious: Yes (Other)
  Sender: FDA-Public Use
  Company Number: HQWYE392718JAN06

PATIENT
  Sex: Female

DRUGS (3)
  1. EFFEXOR XR [Suspect]
     Indication: ANXIETY
     Dosage: ORAL
     Route: 048
     Dates: start: 20051215, end: 20060116
  2. EFFEXOR XR [Suspect]
     Indication: DEPRESSION
     Dosage: ORAL
     Route: 048
     Dates: start: 20051215, end: 20060116
  3. BACTRIM DS [Suspect]
     Indication: URINARY TRACT INFECTION
     Dosage: UNKNOWN DOSE TWICE DAILY, ORAL
     Route: 048
     Dates: start: 20060114, end: 20060116

REACTIONS (1)
  - SWOLLEN TONGUE [None]
